FAERS Safety Report 7726439-4 (Version None)
Quarter: 2011Q3

REPORT INFORMATION
  Report Type: 
  Country: None (occurrence: None)
  Receive Date: 20110902
  Receipt Date: 20110831
  Transmission Date: 20111222
  Serious: Yes (Death)
  Sender: FDA-Public Use
  Company Number: US-PFIZER INC-2011202777

PATIENT
  Sex: Male

DRUGS (5)
  1. THALOMID [Concomitant]
     Dosage: 100 MG, UNK
  2. INTRON A [Concomitant]
     Dosage: 10MU
  3. SUTENT [Suspect]
     Dosage: 37.5 MG, 1X/DAY, FOR 4 WEEKS ON/2 WEEKS OFF
     Route: 048
  4. OXYCONTIN [Concomitant]
     Dosage: 10 MG, UNK
  5. DILAUDID [Concomitant]
     Dosage: 4 MG, UNK

REACTIONS (1)
  - DEATH [None]
